FAERS Safety Report 17804644 (Version 1)
Quarter: 2020Q2

REPORT INFORMATION
  Report Type: Spontaneous
  Country: FR (occurrence: FR)
  Receive Date: 20200519
  Receipt Date: 20200519
  Transmission Date: 20200714
  Serious: Yes (Hospitalization)
  Sender: FDA-Public Use
  Company Number: FR-PURDUE-GBR-2020-0076723

PATIENT
  Age: 84 Year
  Sex: Male
  Weight: 75.8 kg

DRUGS (9)
  1. OXYCONTIN [Suspect]
     Active Substance: OXYCODONE HYDROCHLORIDE
     Dosage: 240 MG, DAILY (STRENGTH 30MG)
     Route: 048
     Dates: start: 201907, end: 20200115
  2. INNOHEP [Concomitant]
     Active Substance: TINZAPARIN SODIUM
  3. VENTOLINE                          /00139501/ [Concomitant]
     Active Substance: ALBUTEROL
  4. OXYCONTIN [Suspect]
     Active Substance: OXYCODONE HYDROCHLORIDE
     Indication: CANCER PAIN
     Dosage: 40 MG, DAILY (STRENGTH 20MG)
     Route: 048
     Dates: start: 201907, end: 20200115
  5. OXYNORM [Suspect]
     Active Substance: OXYCODONE HYDROCHLORIDE
     Indication: CANCER PAIN
     Dosage: 80 MG, DAILY (STRENGTH: 10MG)
     Route: 048
     Dates: start: 201907, end: 20191219
  6. PREGABALIN. [Concomitant]
     Active Substance: PREGABALIN
  7. OMEPRAZOLE. [Concomitant]
     Active Substance: OMEPRAZOLE
  8. CORTANCYL [Concomitant]
     Active Substance: PREDNISONE
  9. ZYMAD [Concomitant]
     Active Substance: CHOLECALCIFEROL

REACTIONS (6)
  - General physical health deterioration [Recovering/Resolving]
  - Asthenia [Recovering/Resolving]
  - Fall [Recovered/Resolved]
  - Confusional state [Recovered/Resolved]
  - Decreased appetite [Recovering/Resolving]
  - Weight loss poor [Not Recovered/Not Resolved]

NARRATIVE: CASE EVENT DATE: 201911
